FAERS Safety Report 6046887-0 (Version None)
Quarter: 2009Q1

REPORT INFORMATION
  Report Type: 
  Country: None (occurrence: None)
  Receive Date: 20090122
  Receipt Date: 20090116
  Transmission Date: 20090719
  Serious: Yes (Other)
  Sender: FDA-Public Use
  Company Number: B0549136A

PATIENT
  Age: 18 Year
  Sex: Female

DRUGS (3)
  1. PAROXETINE HCL [Suspect]
     Dosage: 20MG PER DAY
     Route: 048
     Dates: start: 20081104, end: 20081111
  2. YASMIN [Concomitant]
     Route: 048
  3. GYNO-TARDYFERON [Concomitant]
     Indication: IRON DEFICIENCY
     Route: 065

REACTIONS (5)
  - ANXIETY [None]
  - FATIGUE [None]
  - HALLUCINATION, VISUAL [None]
  - HYPERSOMNIA [None]
  - SOMNOLENCE [None]
